FAERS Safety Report 9412498 (Version 1)
Quarter: 2013Q3

REPORT INFORMATION
  Report Type: Spontaneous
  Country: PH (occurrence: PH)
  Receive Date: 20130722
  Receipt Date: 20130722
  Transmission Date: 20140515
  Serious: Yes (Death)
  Sender: FDA-Public Use
  Company Number: PH-009507513-1307PHL009855

PATIENT
  Age: 76 Year
  Sex: Male

DRUGS (1)
  1. JANUVIA [Suspect]
     Dosage: 1 TABLET, QD
     Route: 048

REACTIONS (1)
  - Upper gastrointestinal haemorrhage [Fatal]
